FAERS Safety Report 19786368 (Version 1)
Quarter: 2021Q3

REPORT INFORMATION
  Report Type: Spontaneous
  Country: IL (occurrence: IL)
  Receive Date: 20210903
  Receipt Date: 20210903
  Transmission Date: 20211014
  Serious: Yes (Hospitalization, Other)
  Sender: FDA-Public Use
  Company Number: IL-LUPIN PHARMACEUTICALS INC.-2021-16376

PATIENT
  Age: 46 Year
  Sex: Female

DRUGS (1)
  1. METHYLPHENIDATE. [Suspect]
     Active Substance: METHYLPHENIDATE
     Indication: ATTENTION DEFICIT HYPERACTIVITY DISORDER
     Dosage: UNK INTRANASAL INHALATION (SNIFFING) FOR OVER 1 YEAR

REACTIONS (9)
  - Necrosis [Unknown]
  - Conjunctival oedema [Recovered/Resolved]
  - Mucosal necrosis [Unknown]
  - Nasal necrosis [Unknown]
  - Ophthalmoplegia [Recovered/Resolved]
  - Resorption bone increased [Unknown]
  - Drug abuse [Unknown]
  - Exophthalmos [Recovered/Resolved]
  - Sinus disorder [Recovered/Resolved]
